FAERS Safety Report 4355595-3 (Version None)
Quarter: 2004Q2

REPORT INFORMATION
  Report Type: 
  Country: None (occurrence: None)
  Receive Date: 20040510
  Receipt Date: 20040427
  Transmission Date: 20050107
  Serious: Yes (Other)
  Sender: FDA-Public Use
  Company Number: CH-GLAXOSMITHKLINE-B0331479A

PATIENT
  Age: 63 Year
  Sex: Male

DRUGS (1)
  1. TOPOTECAN [Suspect]
     Indication: BRONCHIAL CARCINOMA
     Route: 042
     Dates: start: 20040201

REACTIONS (3)
  - VISUAL ACUITY REDUCED [None]
  - VITREOUS FLOATERS [None]
  - VITREOUS HAEMORRHAGE [None]
